FAERS Safety Report 16951680 (Version 1)
Quarter: 2019Q4

REPORT INFORMATION
  Report Type: Spontaneous
  Country: US (occurrence: US)
  Receive Date: 20190903
  Receipt Date: 20190903
  Transmission Date: 20200122
  Serious: Yes (Hospitalization)
  Sender: FDA-Public Use
  Company Number: None

PATIENT
  Age: 72 Year
  Sex: Male
  Weight: 77.56 kg

DRUGS (1)
  1. VANCOMYCIN [Suspect]
     Active Substance: VANCOMYCIN
     Indication: CELLULITIS
     Route: 042
     Dates: start: 20190222, end: 20190224

REACTIONS (5)
  - Eosinophilia [None]
  - Pruritus [None]
  - Urticaria [None]
  - Rash [None]
  - Neutrophilia [None]

NARRATIVE: CASE EVENT DATE: 20190225
